FAERS Safety Report 4867203-3 (Version None)
Quarter: 2005Q4

REPORT INFORMATION
  Report Type: 
  Country: None (occurrence: None)
  Receive Date: 20051227
  Receipt Date: 20051227
  Transmission Date: 20060501
  Serious: Yes (Hospitalization)
  Sender: FDA-Public Use
  Company Number: None

PATIENT
  Age: 72 Year
  Sex: Male
  Weight: 84.4 kg

DRUGS (9)
  1. ALDARA [Suspect]
  2. OMEPRAZOLE [Concomitant]
  3. CAPTOPRIL [Concomitant]
  4. SIMVASTATIN [Concomitant]
  5. METFORMIN HCL [Concomitant]
  6. TERAZOSIN HCL [Concomitant]
  7. DOCUSATE CA [Concomitant]
  8. CHLORPHENIRAMINE MALEATE [Concomitant]
  9. HEMORRHOIDAL/HC RTL SUPP [Concomitant]

REACTIONS (1)
  - SWELLING FACE [None]
